FAERS Safety Report 4687176-6 (Version None)
Quarter: 2005Q2

REPORT INFORMATION
  Report Type: 
  Country: None (occurrence: None)
  Receive Date: 20050607
  Receipt Date: 20050518
  Transmission Date: 20051028
  Serious: Yes (Death, Other)
  Sender: FDA-Public Use
  Company Number: US_0410106356

PATIENT
  Age: 43 Year
  Sex: Male
  Weight: 134 kg

DRUGS (9)
  1. ZYPREXA [Suspect]
     Indication: BIPOLAR DISORDER
     Dosage: 10 MG
     Dates: start: 20011101, end: 20030917
  2. CELEXA [Concomitant]
  3. PAXIL [Concomitant]
  4. CLONAZEPAM [Concomitant]
  5. CARBAMAZEPINE [Concomitant]
  6. DEPAKOTE [Concomitant]
  7. RISPERDAL [Concomitant]
  8. HYDROXYZINE [Concomitant]
  9. PROPRANOLOL [Concomitant]

REACTIONS (1)
  - PANCREATITIS [None]
